FAERS Safety Report 8429099-2 (Version None)
Quarter: 2012Q2

REPORT INFORMATION
  Report Type: 
  Country: None (occurrence: None)
  Receive Date: 20120612
  Receipt Date: 20120531
  Transmission Date: 20120825
  Serious: Yes (Other)
  Sender: FDA-Public Use
  Company Number: US-SANOFI-AVENTIS-2012SA024844

PATIENT
  Sex: Female

DRUGS (5)
  1. LANTUS [Suspect]
     Indication: TYPE 2 DIABETES MELLITUS
     Dosage: DOSE:20 UNIT(S)
     Route: 058
     Dates: start: 20111001
  2. SOLOSTAR [Suspect]
     Indication: TYPE 2 DIABETES MELLITUS
     Dates: start: 20111001
  3. BETA BLOCKING AGENTS [Concomitant]
  4. HUMALOG [Concomitant]
  5. ALL OTHER THERAPEUTIC PRODUCTS [Concomitant]

REACTIONS (9)
  - COUGH [None]
  - CATARACT [None]
  - OEDEMA PERIPHERAL [None]
  - CONDITION AGGRAVATED [None]
  - WHEEZING [None]
  - DIABETES MELLITUS INADEQUATE CONTROL [None]
  - ABDOMINAL DISTENSION [None]
  - WEIGHT INCREASED [None]
  - PURPURA [None]
